FAERS Safety Report 4975089-1 (Version None)
Quarter: 2006Q2

REPORT INFORMATION
  Report Type: 
  Country: None (occurrence: None)
  Receive Date: 20060411
  Receipt Date: 20060327
  Transmission Date: 20061013
  Serious: Yes (Death)
  Sender: FDA-Public Use
  Company Number: 2004-00637

PATIENT
  Age: 53 Year
  Sex: Male
  Weight: 64.5 kg

DRUGS (6)
  1. VELCADE [Suspect]
     Indication: MULTIPLE MYELOMA
     Dosage: 2.22 MG, INTRAVENOUS
     Route: 042
     Dates: start: 20040921, end: 20041001
  2. MORPHINE [Concomitant]
  3. HYDROMORPH CONTIN (HYDROMORPHONE HYDROCHLORIDE) [Concomitant]
  4. DILAUDID [Concomitant]
  5. OXYCONTIN [Concomitant]
  6. DEXAMETHASONE [Concomitant]

REACTIONS (18)
  - ACTIVATED PARTIAL THROMBOPLASTIN TIME PROLONGED [None]
  - BACK PAIN [None]
  - BLOOD ALBUMIN DECREASED [None]
  - BLOOD BICARBONATE INCREASED [None]
  - BLOOD CHLORIDE DECREASED [None]
  - BLOOD CREATININE DECREASED [None]
  - BLOOD IMMUNOGLOBULIN A DECREASED [None]
  - CACHEXIA [None]
  - CONSTIPATION [None]
  - DISEASE PROGRESSION [None]
  - FATIGUE [None]
  - GENERAL PHYSICAL HEALTH DETERIORATION [None]
  - HAEMOGLOBIN DECREASED [None]
  - INTERNATIONAL NORMALISED RATIO INCREASED [None]
  - MALIGNANT PLEURAL EFFUSION [None]
  - MUSCULOSKELETAL CHEST PAIN [None]
  - PLATELET COUNT DECREASED [None]
  - PROTHROMBIN TIME PROLONGED [None]
